FAERS Safety Report 7901597-7 (Version None)
Quarter: 2011Q4

REPORT INFORMATION
  Report Type: 
  Country: None (occurrence: None)
  Receive Date: 20111108
  Receipt Date: 20111025
  Transmission Date: 20120403
  Serious: Yes (Other)
  Sender: FDA-Public Use
  Company Number: BR-PAR PHARMACEUTICAL, INC-2011SCPR003397

PATIENT

DRUGS (22)
  1. DIOVAN [Suspect]
     Indication: PRODUCT USED FOR UNKNOWN INDICATION
     Dosage: 160 MG, UNKNOWN
     Route: 065
     Dates: start: 20081001
  2. RASILEZ [Suspect]
     Indication: PRODUCT USED FOR UNKNOWN INDICATION
     Dosage: 150 MG, UNKNOWN
     Route: 065
     Dates: start: 20081001
  3. SPIRONOLACTONE [Suspect]
     Indication: PRODUCT USED FOR UNKNOWN INDICATION
     Dosage: 50 MG, UNKNOWN
     Route: 065
     Dates: start: 20081201
  4. SIMVASTATIN [Suspect]
     Indication: PRODUCT USED FOR UNKNOWN INDICATION
     Dosage: 20 MG, UNKNOWN
     Route: 065
     Dates: start: 20081201
  5. ISOSORBIDE MONONITRATE [Suspect]
     Indication: PRODUCT USED FOR UNKNOWN INDICATION
     Dosage: 60 MG, UNKNOWN
     Route: 065
     Dates: start: 20081201
  6. GALVUS [Concomitant]
     Indication: PRODUCT USED FOR UNKNOWN INDICATION
     Dosage: 100 MG, UNKNOWN
     Route: 065
     Dates: start: 20110101
  7. NPH INSULIN [Suspect]
     Indication: PRODUCT USED FOR UNKNOWN INDICATION
     Dosage: 42 IU IN THE MORNING AND 30 IU AT NIGHT.(72 IU DAILY)
     Route: 065
     Dates: start: 20081201
  8. SIMVASTATIN [Suspect]
     Dosage: 40 MG, UNKNOWN
     Route: 065
     Dates: start: 20110101
  9. ALLOPURINOL [Concomitant]
     Indication: PRODUCT USED FOR UNKNOWN INDICATION
     Dosage: 300 MG, UNKNOWN
     Route: 065
     Dates: start: 20110101
  10. CLOPIDOGREL BISULFATE [Concomitant]
     Indication: PRODUCT USED FOR UNKNOWN INDICATION
     Dosage: 75 MG, UNKNOWN
     Route: 065
     Dates: start: 20110101
  11. RASILEZ [Suspect]
     Dosage: 300 MG, UNKNOWN
     Route: 065
     Dates: start: 20081201
  12. SPIRONOLACTONE [Suspect]
     Dosage: 25 MG, UNKNOWN
     Route: 065
     Dates: start: 20110101
  13. AMLODIPINE BESYLATE [Suspect]
     Indication: PRODUCT USED FOR UNKNOWN INDICATION
     Dosage: 10 MG, UNKNOWN
     Route: 065
     Dates: start: 20081201
  14. APIDRA [Concomitant]
     Indication: PRODUCT USED FOR UNKNOWN INDICATION
     Dosage: 4 IU BEFORE LUNCH AND 4 IU BEFORE DINNER
     Route: 065
     Dates: start: 20110101
  15. GLYBURIDE AND METFORMIN HYDROCHLORIDE [Suspect]
     Indication: PRODUCT USED FOR UNKNOWN INDICATION
     Dosage: UNK UNK, TID
     Route: 065
  16. ISOSORBIDE MONONITRATE [Suspect]
     Dosage: 60 MG, UNKNOWN
     Route: 065
     Dates: start: 20110101
  17. CAPTOPRIL [Suspect]
     Indication: PRODUCT USED FOR UNKNOWN INDICATION
     Dosage: 150 MG, UNKNOWN
     Route: 065
     Dates: start: 20081201
  18. CARVEDILOL [Suspect]
     Indication: PRODUCT USED FOR UNKNOWN INDICATION
     Dosage: 12.5 MG DAILY
     Route: 065
     Dates: start: 20070501
  19. FUROSEMIDE [Suspect]
     Indication: PRODUCT USED FOR UNKNOWN INDICATION
     Dosage: 240 MG, UNKNOWN
     Route: 065
     Dates: start: 20081201
  20. LANTUS [Concomitant]
     Indication: PRODUCT USED FOR UNKNOWN INDICATION
     Dosage: 28 IU, UNKNOWN
     Route: 065
     Dates: start: 20110101
  21. CARVEDILOL [Suspect]
     Dosage: 50 MG, UNKNOWN
     Route: 065
     Dates: start: 20081001
  22. FUROSEMIDE [Suspect]
     Dosage: 80 MG, UNKNOWN
     Route: 065
     Dates: start: 20110101

REACTIONS (17)
  - BLOOD CREATININE ABNORMAL [None]
  - PROTEINURIA [None]
  - GLYCOSYLATED HAEMOGLOBIN INCREASED [None]
  - BLOOD POTASSIUM ABNORMAL [None]
  - GAMMA-GLUTAMYLTRANSFERASE ABNORMAL [None]
  - EJECTION FRACTION ABNORMAL [None]
  - BLOOD TRIGLYCERIDES ABNORMAL [None]
  - BLOOD PRESSURE ABNORMAL [None]
  - BLOOD GLUCOSE ABNORMAL [None]
  - BLOOD CREATINE PHOSPHOKINASE ABNORMAL [None]
  - C-REACTIVE PROTEIN ABNORMAL [None]
  - HAEMOGLOBIN ABNORMAL [None]
  - CREATININE RENAL CLEARANCE ABNORMAL [None]
  - BRAIN NATRIURETIC PEPTIDE ABNORMAL [None]
  - BLOOD UREA ABNORMAL [None]
  - BLOOD CHOLESTEROL ABNORMAL [None]
  - BLOOD URIC ACID ABNORMAL [None]
